FAERS Safety Report 13605120 (Version 1)
Quarter: 2017Q2

REPORT INFORMATION
  Report Type: Spontaneous
  Country: US (occurrence: US)
  Receive Date: 20170601
  Receipt Date: 20170601
  Transmission Date: 20170830
  Serious: Yes (Death)
  Sender: FDA-Public Use
  Company Number: None

PATIENT
  Age: 68 Year
  Sex: Male

DRUGS (1)
  1. REVLIMID [Suspect]
     Active Substance: LENALIDOMIDE
     Indication: MYELODYSPLASTIC SYNDROME
     Route: 048
     Dates: start: 20170424

REACTIONS (6)
  - Respiratory failure [None]
  - Anaemia [None]
  - Pyrexia [None]
  - Cholelithiasis [None]
  - Atrial fibrillation [None]
  - Acute myocardial infarction [None]

NARRATIVE: CASE EVENT DATE: 20170523
